FAERS Safety Report 4294860-5 (Version None)
Quarter: 2004Q1

REPORT INFORMATION
  Report Type: 
  Country: None (occurrence: None)
  Receive Date: 20040216
  Receipt Date: 20030129
  Transmission Date: 20041129
  Serious: No
  Sender: FDA-Public Use
  Company Number: US-GLAXOSMITHKLINE-A0394642A

PATIENT
  Age: 52 Year
  Sex: Female

DRUGS (9)
  1. LAMICTAL [Suspect]
     Indication: BIPOLAR DISORDER
     Dosage: 100MG UNKNOWN
     Route: 048
  2. KLONOPIN [Concomitant]
  3. AMBIEN [Concomitant]
  4. ELAVIL [Concomitant]
  5. EFFEXOR [Concomitant]
  6. ESKALITH CR [Concomitant]
  7. SOMA [Concomitant]
  8. LORCET-HD [Concomitant]
  9. CORMAX [Concomitant]

REACTIONS (1)
  - ERYTHEMA MULTIFORME [None]
